FAERS Safety Report 4738016-8 (Version None)
Quarter: 2005Q3

REPORT INFORMATION
  Report Type: 
  Country: None (occurrence: None)
  Receive Date: 20050805
  Receipt Date: 20050728
  Transmission Date: 20060218
  Serious: Yes (Disabling)
  Sender: FDA-Public Use
  Company Number: ERP05000097

PATIENT
  Age: 76 Year
  Sex: Female
  Weight: 63.5 kg

DRUGS (7)
  1. MACRODANTIN [Suspect]
     Indication: CYSTITIS
     Dosage: 100 MG, 4/DAY, ORAL
     Route: 048
     Dates: start: 20050610, end: 20050613
  2. DILANTIN   /AUS/(PHENYTOIN SODIUM) [Concomitant]
  3. VITAMIN D [Concomitant]
  4. CARTIA   /AUST/(ACETYLSALICYLIC ACID) [Concomitant]
  5. ISOPTIN [Concomitant]
  6. FOSAMAX [Concomitant]
  7. PANTOPRAZOLE SODIUM [Concomitant]

REACTIONS (18)
  - ABDOMINAL PAIN UPPER [None]
  - BODY TEMPERATURE FLUCTUATION [None]
  - CHILLS [None]
  - DIARRHOEA [None]
  - DYSENTERY [None]
  - ERYTHEMA MULTIFORME [None]
  - FEELING HOT AND COLD [None]
  - HAEMATEMESIS [None]
  - HALLUCINATION [None]
  - HEADACHE [None]
  - HYPERHIDROSIS [None]
  - HYPERSENSITIVITY [None]
  - NAUSEA [None]
  - PARAESTHESIA [None]
  - PHOTOSENSITIVITY REACTION [None]
  - POISONING [None]
  - PRURITUS [None]
  - URTICARIA [None]
